FAERS Safety Report 5684667-6 (Version None)
Quarter: 2008Q1

REPORT INFORMATION
  Report Type: 
  Country: None (occurrence: None)
  Receive Date: 20080328
  Receipt Date: 20070613
  Transmission Date: 20080703
  Serious: No
  Sender: FDA-Public Use
  Company Number: US-BRISTOL-MYERS SQUIBB COMPANY-13789110

PATIENT
  Age: 66 Year
  Sex: Male

DRUGS (8)
  1. ERBITUX [Suspect]
     Indication: NEOPLASM MALIGNANT
  2. RADIATION THERAPY [Suspect]
     Indication: NEOPLASM MALIGNANT
     Dates: start: 20050822, end: 20051101
  3. DIFLUCAN [Concomitant]
  4. ADVIL [Concomitant]
     Dates: start: 20050909
  5. TYLENOL W/ CODEINE NO. 3 [Concomitant]
     Dates: start: 20050921
  6. CETACAINE [Concomitant]
     Dates: start: 20050921
  7. OXYCONTIN [Concomitant]
  8. MOUTHWASH [Concomitant]
     Dates: start: 20050901

REACTIONS (4)
  - ANALGESIA [None]
  - PAIN [None]
  - RASH [None]
  - STOMATITIS [None]
